FAERS Safety Report 22657297 (Version 2)
Quarter: 2024Q2

REPORT INFORMATION
  Report Type: Spontaneous
  Country: RU (occurrence: None)
  Receive Date: 20230630
  Receipt Date: 20240424
  Transmission Date: 20240716
  Serious: Yes (Other)
  Sender: FDA-Public Use
  Company Number: RU-ROCHE-3378975

PATIENT
  Age: 65 Year
  Sex: Female

DRUGS (13)
  1. RITUXIMAB [Suspect]
     Active Substance: RITUXIMAB
     Indication: Follicular lymphoma
     Route: 065
     Dates: start: 202003, end: 202010
  2. RITUXIMAB [Suspect]
     Active Substance: RITUXIMAB
     Route: 065
     Dates: start: 202103, end: 202110
  3. RITUXIMAB [Suspect]
     Active Substance: RITUXIMAB
     Route: 065
     Dates: start: 202203, end: 202206
  4. CYCLOPHOSPHAMIDE [Suspect]
     Active Substance: CYCLOPHOSPHAMIDE
     Indication: Follicular lymphoma
     Route: 065
     Dates: start: 202003, end: 202010
  5. CYCLOPHOSPHAMIDE [Suspect]
     Active Substance: CYCLOPHOSPHAMIDE
     Route: 065
     Dates: start: 202203, end: 202206
  6. DOXORUBICIN [Suspect]
     Active Substance: DOXORUBICIN
     Indication: Follicular lymphoma
     Route: 065
     Dates: start: 202003, end: 202010
  7. VINCRISTINE [Suspect]
     Active Substance: VINCRISTINE
     Indication: Follicular lymphoma
     Route: 065
     Dates: start: 202003, end: 202010
  8. VINCRISTINE [Suspect]
     Active Substance: VINCRISTINE
     Route: 065
     Dates: start: 202203, end: 202206
  9. PREDNISOLONE [Suspect]
     Active Substance: PREDNISOLONE
     Indication: Follicular lymphoma
     Route: 065
     Dates: start: 202003, end: 202010
  10. PREDNISOLONE [Suspect]
     Active Substance: PREDNISOLONE
     Route: 065
     Dates: start: 202203, end: 202206
  11. DUVELISIB [Suspect]
     Active Substance: DUVELISIB
     Indication: Follicular lymphoma
     Route: 048
     Dates: start: 20221124
  12. BENDAMUSTINE [Suspect]
     Active Substance: BENDAMUSTINE
     Indication: Follicular lymphoma
     Route: 065
     Dates: start: 202103, end: 202110
  13. MOSUNETUZUMAB [Suspect]
     Active Substance: MOSUNETUZUMAB
     Indication: Follicular lymphoma
     Route: 065
     Dates: start: 20230318, end: 20230419

REACTIONS (7)
  - Disease progression [Unknown]
  - Neutropenia [Unknown]
  - Leukopenia [Unknown]
  - Pneumonia viral [Unknown]
  - Pneumonia bacterial [Unknown]
  - Coronavirus infection [Unknown]
  - Liver function test increased [Unknown]
